FAERS Safety Report 8585956-8 (Version None)
Quarter: 2012Q3

REPORT INFORMATION
  Report Type: 
  Country: None (occurrence: None)
  Receive Date: 20120810
  Receipt Date: 20120731
  Transmission Date: 20120928
  Serious: Yes (Other)
  Sender: FDA-Public Use
  Company Number: GB-ROCHE-1045496

PATIENT
  Age: 36 Year
  Sex: Female

DRUGS (6)
  1. PREGABALIN [Suspect]
  2. PREGABALIN [Suspect]
     Indication: PAIN
     Route: 048
     Dates: start: 20111203, end: 20111209
  3. BOTULINUM TOXIN TYPE B [Suspect]
     Indication: DYSTONIA
     Route: 030
     Dates: start: 20090604
  4. BACLOFEN [Suspect]
     Indication: PRODUCT USED FOR UNKNOWN INDICATION
     Dates: end: 20111209
  5. CLONAZEPAM [Suspect]
     Indication: PRODUCT USED FOR UNKNOWN INDICATION
     Route: 048
  6. AMITRIPTYLINE HCL [Suspect]
     Indication: PRODUCT USED FOR UNKNOWN INDICATION
     Route: 048

REACTIONS (2)
  - MATERNAL EXPOSURE DURING PREGNANCY [None]
  - ABORTION SPONTANEOUS [None]
